FAERS Safety Report 20432030 (Version 1)
Quarter: 2022Q1

REPORT INFORMATION
  Report Type: Report from Study
  Country: AU (occurrence: None)
  Receive Date: 20220204
  Receipt Date: 20220204
  Transmission Date: 20220423
  Serious: Yes (Other)
  Sender: FDA-Public Use
  Company Number: 2022A050528

PATIENT
  Age: 67 Year
  Sex: Female

DRUGS (25)
  1. DURVALUMAB [Suspect]
     Active Substance: DURVALUMAB
     Indication: Endometrial cancer
     Dosage: 1120.0MG ONCE/SINGLE ADMINISTRATION
     Route: 042
     Dates: start: 20211001, end: 20211001
  2. DURVALUMAB [Suspect]
     Active Substance: DURVALUMAB
     Indication: Endometrial cancer
     Dosage: 1120.0MG ONCE/SINGLE ADMINISTRATION
     Route: 042
     Dates: start: 20211029, end: 20211029
  3. DURVALUMAB [Suspect]
     Active Substance: DURVALUMAB
     Indication: Endometrial cancer
     Dosage: 1120.0MG ONCE/SINGLE ADMINISTRATION
     Route: 042
     Dates: start: 20211119, end: 20211119
  4. DURVALUMAB [Suspect]
     Active Substance: DURVALUMAB
     Indication: Endometrial cancer
     Dosage: 1120.0MG ONCE/SINGLE ADMINISTRATION
     Route: 042
     Dates: start: 20211210, end: 20211210
  5. DURVALUMAB [Suspect]
     Active Substance: DURVALUMAB
     Indication: Endometrial cancer
     Dosage: 1120.0MG ONCE/SINGLE ADMINISTRATION
     Route: 042
     Dates: start: 20211231, end: 20211231
  6. DURVALUMAB [Suspect]
     Active Substance: DURVALUMAB
     Indication: Endometrial cancer
     Dosage: 1120.0MG ONCE/SINGLE ADMINISTRATION
     Route: 042
     Dates: start: 20220121, end: 20220121
  7. CARBOPLATIN [Suspect]
     Active Substance: CARBOPLATIN
     Indication: Endometrial cancer
     Dosage: 360.0MG ONCE/SINGLE ADMINISTRATION
     Route: 042
     Dates: start: 20211001, end: 20211001
  8. CARBOPLATIN [Suspect]
     Active Substance: CARBOPLATIN
     Indication: Endometrial cancer
     Dosage: 360.0MG ONCE/SINGLE ADMINISTRATION
     Route: 042
     Dates: start: 20211029, end: 20211029
  9. CARBOPLATIN [Suspect]
     Active Substance: CARBOPLATIN
     Indication: Endometrial cancer
     Dosage: 360.0MG ONCE/SINGLE ADMINISTRATION
     Route: 042
     Dates: start: 20211119, end: 20211119
  10. CARBOPLATIN [Suspect]
     Active Substance: CARBOPLATIN
     Indication: Endometrial cancer
     Dosage: 360.0MG ONCE/SINGLE ADMINISTRATION
     Route: 042
     Dates: start: 20211210, end: 20211210
  11. CARBOPLATIN [Suspect]
     Active Substance: CARBOPLATIN
     Indication: Endometrial cancer
     Dosage: 360.0MG ONCE/SINGLE ADMINISTRATION
     Route: 042
     Dates: start: 20211231, end: 20211231
  12. CARBOPLATIN [Suspect]
     Active Substance: CARBOPLATIN
     Indication: Endometrial cancer
     Dosage: 360.0MG ONCE/SINGLE ADMINISTRATION
     Route: 042
     Dates: start: 20220121, end: 20220121
  13. PACLITAXEL [Suspect]
     Active Substance: PACLITAXEL
     Indication: Endometrial cancer
     Dosage: 175.0MG/M2 ONCE/SINGLE ADMINISTRATION
     Route: 042
     Dates: start: 20211001, end: 20211001
  14. PACLITAXEL [Suspect]
     Active Substance: PACLITAXEL
     Indication: Endometrial cancer
     Dosage: 175.0MG/M2 ONCE/SINGLE ADMINISTRATION
     Route: 042
     Dates: start: 20211029, end: 20211029
  15. PACLITAXEL [Suspect]
     Active Substance: PACLITAXEL
     Indication: Endometrial cancer
     Dosage: 175.0MG/M2 ONCE/SINGLE ADMINISTRATION
     Route: 042
     Dates: start: 20211119, end: 20211119
  16. PACLITAXEL [Suspect]
     Active Substance: PACLITAXEL
     Indication: Endometrial cancer
     Dosage: 175.0MG/M2 ONCE/SINGLE ADMINISTRATION
     Route: 042
     Dates: start: 20211210, end: 20211210
  17. PACLITAXEL [Suspect]
     Active Substance: PACLITAXEL
     Indication: Endometrial cancer
     Dosage: 175.0MG/M2 ONCE/SINGLE ADMINISTRATION
     Route: 042
     Dates: start: 20211231, end: 20211231
  18. PACLITAXEL [Suspect]
     Active Substance: PACLITAXEL
     Indication: Endometrial cancer
     Dosage: 153.0MG/M2 ONCE/SINGLE ADMINISTRATION
     Route: 042
     Dates: start: 20220121, end: 20220121
  19. METFORMIN [Concomitant]
     Active Substance: METFORMIN HYDROCHLORIDE
     Indication: Diabetes mellitus
     Route: 048
     Dates: start: 20200502
  20. PERINDOPRIL ERBUMINE [Concomitant]
     Active Substance: PERINDOPRIL ERBUMINE
     Indication: Hypertension
     Route: 048
     Dates: start: 201606
  21. BREO ELLIPTA [Concomitant]
     Active Substance: FLUTICASONE FUROATE\VILANTEROL TRIFENATATE
     Indication: Lower respiratory tract infection
     Route: 055
     Dates: start: 20210917
  22. BIMATOPROST\TIMOLOL [Concomitant]
     Active Substance: BIMATOPROST\TIMOLOL
     Indication: Glaucoma
     Route: 047
     Dates: start: 2016
  23. SWISSE ULTIVITE WOMENS 50+ [Concomitant]
     Indication: Supplementary motor area syndrome
     Dosage: 1 TABLET
     Route: 048
     Dates: start: 202106
  24. DIETARY SUPPLEMENT\PROBIOTICS [Concomitant]
     Active Substance: DIETARY SUPPLEMENT\PROBIOTICS
     Indication: Supplementary motor area syndrome
     Dosage: 1 TABLET
     Route: 048
     Dates: start: 20210917
  25. MAGNESIUM [Concomitant]
     Active Substance: MAGNESIUM
     Dosage: 200MG/G
     Route: 048
     Dates: start: 20211104

REACTIONS (1)
  - Drug-induced liver injury [Unknown]
